FAERS Safety Report 24132220 (Version 2)
Quarter: 2024Q4

REPORT INFORMATION
  Report Type: Spontaneous
  Country: DE (occurrence: DE)
  Receive Date: 20240724
  Receipt Date: 20241025
  Transmission Date: 20250115
  Serious: Yes (Life-Threatening, Hospitalization, Other)
  Sender: MACLEODS
  Company Number: DE-MACLEODS PHARMA-MAC2014001280

PATIENT

DRUGS (10)
  1. LEVOFLOXACIN [Suspect]
     Active Substance: LEVOFLOXACIN
     Indication: Pneumonia
     Dosage: 500 MG/DAY
     Route: 042
  2. LEVOFLOXACIN [Suspect]
     Active Substance: LEVOFLOXACIN
     Dosage: 500 MG, BID
     Route: 042
  3. SIMVASTATIN [Suspect]
     Active Substance: SIMVASTATIN
     Indication: Hypercholesterolaemia
     Dosage: 40 MG/DAY
     Route: 065
  4. SIMVASTATIN [Suspect]
     Active Substance: SIMVASTATIN
     Dosage: 80 MG/DAY
     Route: 048
  5. SIMVASTATIN [Suspect]
     Active Substance: SIMVASTATIN
     Dosage: 40 MG/DAY
     Route: 048
  6. METOPROLOL [Concomitant]
     Active Substance: METOPROLOL
     Indication: Product used for unknown indication
     Dosage: 25 MG, BID
     Route: 065
  7. ASPIRIN [Concomitant]
     Active Substance: ASPIRIN
     Indication: Product used for unknown indication
     Dosage: 100 MG/DAY
     Route: 065
  8. DIGITOXIN [Concomitant]
     Active Substance: DIGITOXIN
     Indication: Product used for unknown indication
     Dosage: 0.07 MG/DAY
     Route: 065
  9. FUROSEMIDE [Concomitant]
     Active Substance: FUROSEMIDE
     Indication: Product used for unknown indication
     Dosage: 40 MG/DAY
     Route: 048
  10. FUROSEMIDE [Concomitant]
     Active Substance: FUROSEMIDE
     Route: 065

REACTIONS (13)
  - Rhabdomyolysis [Recovered/Resolved]
  - Hepatocellular injury [Recovered/Resolved]
  - Respiratory failure [Recovered/Resolved]
  - Asthenia [Recovered/Resolved]
  - Dysstasia [Recovered/Resolved]
  - Muscular weakness [Recovered/Resolved]
  - Hepatic enzyme increased [Recovered/Resolved]
  - Muscle enzyme increased [Recovered/Resolved]
  - General physical health deterioration [Unknown]
  - Inflammatory marker increased [Recovering/Resolving]
  - Non-small cell lung cancer [Unknown]
  - Drug ineffective [Unknown]
  - Drug interaction [Recovered/Resolved]
